FAERS Safety Report 5636462-1 (Version None)
Quarter: 2008Q1

REPORT INFORMATION
  Report Type: 
  Country: None (occurrence: None)
  Receive Date: 20080225
  Receipt Date: 20080222
  Transmission Date: 20080703
  Serious: Yes (Death)
  Sender: FDA-Public Use
  Company Number: US-BRISTOL-MYERS SQUIBB COMPANY-13983879

PATIENT
  Sex: Female

DRUGS (3)
  1. DEFINITY [Suspect]
     Indication: ECHOCARDIOGRAM
     Dosage: THERAPY DURATION(UNK-ABOUT 2002-2003)
     Route: 042
  2. LEVOPHED [Concomitant]
  3. DOBUTAMINE [Concomitant]

REACTIONS (1)
  - DEATH [None]
